FAERS Safety Report 13088801 (Version 1)
Quarter: 2017Q1

REPORT INFORMATION
  Report Type: Spontaneous
  Country: US (occurrence: US)
  Receive Date: 20170105
  Receipt Date: 20170105
  Transmission Date: 20170428
  Serious: Yes (Other)
  Sender: FDA-Public Use
  Company Number: US-FRESENIUS KABI-FK201700050

PATIENT
  Age: 9 Year
  Sex: Male

DRUGS (2)
  1. CLOFARABINE [Suspect]
     Active Substance: CLOFARABINE
     Indication: ACUTE LYMPHOCYTIC LEUKAEMIA
     Route: 065
  2. CYTARABINE (MANUFACTURER UNKNOWN) [Suspect]
     Active Substance: CYTARABINE
     Indication: ACUTE LYMPHOCYTIC LEUKAEMIA
     Route: 065

REACTIONS (5)
  - Thrombosis [Recovered/Resolved]
  - Haematuria [Recovered/Resolved]
  - Urinary retention [Recovered/Resolved]
  - Cystitis haemorrhagic [Recovered/Resolved]
  - Thrombocytopenia [Recovered/Resolved]
